FAERS Safety Report 8884979 (Version 1)
Quarter: 2012Q4

REPORT INFORMATION
  Report Type: 
  Country: US (occurrence: US)
  Receive Date: 20121102
  Receipt Date: 20121102
  Transmission Date: 20130627
  Serious: No
  Sender: FDA-Public Use
  Company Number: US-BAYER-2012-114863

PATIENT
  Sex: Female

DRUGS (4)
  1. ALEVE CAPLET/TABLET,MIDOL EXTENDED RELIEF CAPLET [Suspect]
     Dosage: 4 DF, everyday longer then 10 days in a row
  2. BLOOD PRESSURE MEDICINE [Concomitant]
  3. HIGH CHOLESTEROL MEDICINE [Concomitant]
  4. SLEEP AID MEDICINE [Concomitant]

REACTIONS (1)
  - No adverse event [None]
